FAERS Safety Report 21255428 (Version 1)
Quarter: 2022Q3

REPORT INFORMATION
  Report Type: Spontaneous
  Country: US (occurrence: US)
  Receive Date: 20220825
  Receipt Date: 20220825
  Transmission Date: 20221027
  Serious: Yes (Death, Hospitalization)
  Sender: FDA-Public Use
  Company Number: US-MYLANLABS-2022M1087895

PATIENT
  Age: 82 Year
  Sex: Male

DRUGS (18)
  1. NOREPINEPHRINE [Suspect]
     Active Substance: NOREPINEPHRINE
     Indication: Hypotension
     Dosage: UNK, INFUSION
     Route: 065
  2. HYDROMORPHONE [Concomitant]
     Active Substance: HYDROMORPHONE
     Indication: Product used for unknown indication
     Dosage: 2 MILLIGRAM, PRN
     Route: 065
  3. HYDROMORPHONE [Concomitant]
     Active Substance: HYDROMORPHONE
     Dosage: 1.5 MILLIGRAM
     Route: 065
  4. TRELEGY ELLIPTA [Concomitant]
     Active Substance: FLUTICASONE FUROATE\UMECLIDINIUM BROMIDE\VILANTEROL TRIFENATATE
     Indication: Product used for unknown indication
     Dosage: UNK, QD (100-62.5-25 MCG DAILY)
     Route: 065
  5. MONTELUKAST [Concomitant]
     Active Substance: MONTELUKAST SODIUM
     Indication: Product used for unknown indication
     Dosage: 10 MILLIGRAM
     Route: 065
  6. FENTANYL [Concomitant]
     Active Substance: FENTANYL
     Indication: Analgesic therapy
     Dosage: 50 MICROGRAM
     Route: 065
  7. FENTANYL [Concomitant]
     Active Substance: FENTANYL
     Dosage: 10 MICROGRAM
     Route: 065
  8. FAMOTIDINE [Concomitant]
     Active Substance: FAMOTIDINE
     Indication: Product used for unknown indication
     Dosage: 20 MILLIGRAM
     Route: 042
  9. LIDOCAINE [Concomitant]
     Active Substance: LIDOCAINE
     Indication: Product used for unknown indication
     Dosage: 5 MILLILITER
     Route: 065
  10. PROPOFOL [Concomitant]
     Active Substance: PROPOFOL
     Indication: Product used for unknown indication
     Dosage: 50 MILLIGRAM
     Route: 065
  11. ROCURONIUM [Concomitant]
     Active Substance: ROCURONIUM BROMIDE
     Indication: Product used for unknown indication
     Dosage: 50 MILLIGRAM
     Route: 065
  12. CEFOXITIN [Concomitant]
     Active Substance: CEFOXITIN SODIUM
     Indication: Antibiotic prophylaxis
     Dosage: 2 GRAM
     Route: 065
  13. ERTAPENEM [Concomitant]
     Active Substance: ERTAPENEM
     Indication: Antibiotic prophylaxis
     Dosage: 1 GRAM
     Route: 065
  14. DESFLURANE [Concomitant]
     Active Substance: DESFLURANE
     Indication: Product used for unknown indication
     Dosage: DESFLURANE 4-7%
     Route: 065
  15. BUPIVACAINE [Concomitant]
     Active Substance: BUPIVACAINE
     Indication: Product used for unknown indication
     Dosage: UNK
     Route: 065
  16. ESMOLOL [Concomitant]
     Active Substance: ESMOLOL HYDROCHLORIDE
     Indication: Electrocardiogram ST segment depression
     Dosage: UNK
     Route: 065
  17. AZELASTINE [Concomitant]
     Active Substance: AZELASTINE
     Indication: Chronic obstructive pulmonary disease
     Dosage: UNK
     Route: 045
  18. SUGAMMADEX [Concomitant]
     Active Substance: SUGAMMADEX
     Indication: Muscle twitching
     Dosage: 200 MILLIGRAM, (2.9 MG/KG)
     Route: 065

REACTIONS (1)
  - Drug ineffective [Fatal]
